FAERS Safety Report 14766020 (Version 1)
Quarter: 2018Q2

REPORT INFORMATION
  Report Type: Spontaneous
  Country: US (occurrence: US)
  Receive Date: 20180416
  Receipt Date: 20180416
  Transmission Date: 20180711
  Serious: Yes (Other)
  Sender: FDA-Public Use
  Company Number: US-ASTELLAS-2018US007208

PATIENT
  Age: 62 Year
  Sex: Male

DRUGS (1)
  1. PROGRAF [Suspect]
     Active Substance: TACROLIMUS\TACROLIMUS ANHYDROUS
     Indication: HEART TRANSPLANT
     Dosage: 1 MG, TWICE DAILY (AM PLUS PM).
     Route: 048
     Dates: start: 20030605

REACTIONS (1)
  - Prostate cancer [Recovered/Resolved]

NARRATIVE: CASE EVENT DATE: 201705
